FAERS Safety Report 15234645 (Version 4)
Quarter: 2021Q4

REPORT INFORMATION
  Report Type: Report from Study
  Country: JP (occurrence: JP)
  Receive Date: 20180803
  Receipt Date: 20211017
  Transmission Date: 20220303
  Serious: No
  Sender: FDA-Public Use
  Company Number: JP-BEH-2018093396

PATIENT
  Age: 84 Year
  Sex: Male
  Weight: 53.9 kg

DRUGS (13)
  1. BERIPLEX P/N [Suspect]
     Active Substance: COAGULATION FACTOR IX HUMAN\COAGULATION FACTOR VII HUMAN\COAGULATION FACTOR X HUMAN\PROTEIN C\PROTEI
     Indication: Haemorrhage
     Dosage: 1400 IU, UNK
     Route: 042
     Dates: start: 20171225
  2. BERIPLEX P/N [Suspect]
     Active Substance: COAGULATION FACTOR IX HUMAN\COAGULATION FACTOR VII HUMAN\COAGULATION FACTOR X HUMAN\PROTEIN C\PROTEI
     Indication: Haemorrhage
     Dosage: 1400 IU, UNK
     Route: 042
     Dates: start: 20171225
  3. MENATETRENONE [Concomitant]
     Active Substance: MENATETRENONE
     Indication: Procoagulant therapy
     Dosage: 10 MG, UNK
     Route: 065
     Dates: start: 20171225, end: 20171225
  4. WARFARIN [Concomitant]
     Active Substance: WARFARIN
     Indication: Atrial fibrillation
     Dosage: 2 MG, UNK
     Route: 048
     Dates: end: 20171225
  5. CARVEDILOL [Concomitant]
     Active Substance: CARVEDILOL
     Dosage: UNK
     Route: 048
     Dates: end: 20171224
  6. VERAPAMIL [Concomitant]
     Active Substance: VERAPAMIL HYDROCHLORIDE
     Dosage: UNK
     Route: 048
     Dates: end: 20171224
  7. KN REPLACEMENT                     /00203501/ [Concomitant]
     Dosage: UNK
     Route: 065
     Dates: start: 20171225, end: 20171226
  8. CARBAZOCHROME [Concomitant]
     Active Substance: CARBAZOCHROME
     Dosage: UNK
     Route: 065
     Dates: start: 20171226, end: 20171226
  9. CLARITHROMYCIN [Concomitant]
     Active Substance: CLARITHROMYCIN
     Dosage: UNK
     Route: 048
     Dates: end: 20171224
  10. XYZAL [Concomitant]
     Active Substance: LEVOCETIRIZINE DIHYDROCHLORIDE
     Dosage: UNK
     Route: 048
     Dates: end: 20171224
  11. FAMOTIDINE [Concomitant]
     Active Substance: FAMOTIDINE
     Indication: Prophylaxis
     Dosage: UNK
     Route: 048
     Dates: end: 20171224
  12. OMEPRAZOLE [Concomitant]
     Active Substance: OMEPRAZOLE
     Indication: Prophylaxis
     Dosage: UNK
     Route: 065
     Dates: start: 20171225, end: 20171225
  13. NICARDIPINE [Concomitant]
     Active Substance: NICARDIPINE
     Dosage: UNK
     Route: 065
     Dates: start: 20171225, end: 20171225

REACTIONS (1)
  - Cerebral haemorrhage [Fatal]
